FAERS Safety Report 7549493-1 (Version None)
Quarter: 2011Q2

REPORT INFORMATION
  Report Type: 
  Country: None (occurrence: None)
  Receive Date: 20110615
  Receipt Date: 20050203
  Transmission Date: 20111010
  Serious: Yes (Hospitalization, Other)
  Sender: FDA-Public Use
  Company Number: PHFR2005GB00514

PATIENT
  Sex: Male

DRUGS (1)
  1. CLOZAPINE [Suspect]
     Indication: SCHIZOPHRENIA
     Dosage: 600 MG, DAILY
     Dates: start: 19920108

REACTIONS (9)
  - INFECTION [None]
  - ASTHMA [None]
  - CONSTIPATION [None]
  - FAECALOMA [None]
  - SEPSIS [None]
  - AGRANULOCYTOSIS [None]
  - LOWER RESPIRATORY TRACT INFECTION [None]
  - FEMORAL NECK FRACTURE [None]
  - PANCYTOPENIA [None]
